FAERS Safety Report 6480355-7 (Version None)
Quarter: 2009Q4

REPORT INFORMATION
  Report Type: 
  Country: None (occurrence: None)
  Receive Date: 20091208
  Receipt Date: 20091203
  Transmission Date: 20100525
  Serious: Yes (Hospitalization)
  Sender: FDA-Public Use
  Company Number: JP-BAYER-200914824BYL

PATIENT
  Age: 84 Year
  Sex: Male
  Weight: 64 kg

DRUGS (5)
  1. CIPROXAN-I.V. [Suspect]
     Indication: PNEUMONIA
     Dosage: TOTAL DAILY DOSE: 600 MG  UNIT DOSE: 300 MG
     Route: 041
     Dates: start: 20090708, end: 20090715
  2. PICILLIBACTA [Concomitant]
     Indication: PNEUMONIA
     Dosage: TOTAL DAILY DOSE: 6000 MG
     Route: 041
     Dates: start: 20090701, end: 20090708
  3. ARICEPT [Concomitant]
     Dosage: TOTAL DAILY DOSE: 5 MG
     Route: 048
     Dates: start: 20090701
  4. BFLUID [Concomitant]
     Dosage: TOTAL DAILY DOSE: 1000 ML
     Route: 042
     Dates: start: 20090706, end: 20090710
  5. INTRAFAT [Concomitant]
     Dosage: TOTAL DAILY DOSE: 100 ML
     Route: 042
     Dates: start: 20090706, end: 20090710

REACTIONS (3)
  - OEDEMA PERIPHERAL [None]
  - PLEURAL EFFUSION [None]
  - RASH [None]
